FAERS Safety Report 18621734 (Version 3)
Quarter: 2021Q1

REPORT INFORMATION
  Report Type: Spontaneous
  Country: PT (occurrence: PT)
  Receive Date: 20201216
  Receipt Date: 20210323
  Transmission Date: 20210419
  Serious: Yes (Hospitalization)
  Sender: FDA-Public Use
  Company Number: PT-AUROBINDO-AUR-APL-2020-060584

PATIENT
  Age: 31 Year
  Sex: Male

DRUGS (1)
  1. CETIRIZINE AUROBINDO FILM?COATED TABLETS [Suspect]
     Active Substance: CETIRIZINE HYDROCHLORIDE
     Indication: PRODUCT USED FOR UNKNOWN INDICATION
     Dosage: UNK
     Route: 048
     Dates: start: 20200916

REACTIONS (4)
  - Lip swelling [Recovered/Resolved]
  - Swollen tongue [Recovered/Resolved]
  - Drug ineffective [Recovered/Resolved]
  - Allergic oedema [Recovered/Resolved]

NARRATIVE: CASE EVENT DATE: 20200916
